FAERS Safety Report 21602327 (Version 1)
Quarter: 2022Q4

REPORT INFORMATION
  Report Type: Spontaneous
  Country: ES (occurrence: ES)
  Receive Date: 20221116
  Receipt Date: 20221116
  Transmission Date: 20230113
  Serious: Yes (Life-Threatening, Hospitalization, Other)
  Sender: FDA-Public Use
  Company Number: ES-PFIZER INC-202100932777

PATIENT
  Age: 23 Year
  Sex: Male

DRUGS (16)
  1. PHENYTOIN SODIUM [Suspect]
     Active Substance: PHENYTOIN SODIUM
     Indication: Status epilepticus
     Dosage: 800 MG, DAILY
     Route: 065
  2. METHYLPREDNISOLONE SODIUM SUCCINATE [Suspect]
     Active Substance: METHYLPREDNISOLONE SODIUM SUCCINATE
     Indication: Status epilepticus
     Dosage: 1 G, DAILY,METHYLPREDNISOLONE 1G/D SUCCESSIVELY ADMINISTERED AT DAYS 14,17,20 AND 23RESPECTIVELY
     Route: 065
  3. HUMAN IMMUNOGLOBULIN G [Suspect]
     Active Substance: HUMAN IMMUNOGLOBULIN G
     Indication: Product used for unknown indication
     Dosage: 0.4 G/KG/DAY,IV-IG 0.4G/KG/DAY SUCCESSIVELY ADMINISTERED AT DAYS 14, 17, 20 AND 23, RESPECTIVELY
     Route: 042
  4. HUMAN IMMUNOGLOBULIN G [Suspect]
     Active Substance: HUMAN IMMUNOGLOBULIN G
     Indication: Status epilepticus
  5. TOCILIZUMAB [Suspect]
     Active Substance: TOCILIZUMAB
     Indication: Product used for unknown indication
     Dosage: 8 MG/KG, DAILY
     Route: 065
  6. BRIVARACETAM [Suspect]
     Active Substance: BRIVARACETAM
     Indication: Status epilepticus
     Dosage: 400 MG, DAILY
     Route: 065
  7. LACOSAMIDE [Suspect]
     Active Substance: LACOSAMIDE
     Indication: Status epilepticus
     Dosage: 500 MG, DAILY
     Route: 065
  8. PERAMPANEL [Suspect]
     Active Substance: PERAMPANEL
     Indication: Status epilepticus
     Dosage: 12 MG, DAILY
     Route: 065
  9. PERAMPANEL [Suspect]
     Active Substance: PERAMPANEL
     Dosage: 20 MILLIGRAM, QD
     Route: 065
  10. PHENOBARBITAL [Suspect]
     Active Substance: PHENOBARBITAL
     Indication: Status epilepticus
     Dosage: 800 MG, DAILY
     Route: 065
  11. CLONAZEPAM [Suspect]
     Active Substance: CLONAZEPAM
     Indication: Status epilepticus
     Dosage: 3 MG, DAILY
     Route: 065
  12. KINERET [Suspect]
     Active Substance: ANAKINRA
     Indication: Status epilepticus
     Dosage: UNK, BID,AT DAY 28, ANAKINRA AT 5MG/KG EVERY 12 HOURS WAS STARTED
     Route: 065
  13. ZONISAMIDE [Concomitant]
     Active Substance: ZONISAMIDE
     Indication: Status epilepticus
     Dosage: 200 MILLIGRAM
     Route: 065
  14. VALPROIC ACID [Concomitant]
     Active Substance: VALPROIC ACID
     Indication: Status epilepticus
     Dosage: 1500 MILLIGRAM
     Route: 065
  15. CANNABIDIOL [Concomitant]
     Active Substance: CANNABIDIOL
     Indication: Status epilepticus
     Dosage: UNK
     Route: 065
  16. TOCILIZUMAB [Concomitant]
     Active Substance: TOCILIZUMAB
     Indication: Status epilepticus
     Dosage: UNK, QD,TOCILIZUMAB 8MG/KG/DAY SUCCESSIVELY ADMINISTERED AT DAYS 14, 17, 20 AND 23,RESPECTIVELY
     Route: 065

REACTIONS (4)
  - Neutropenia [Unknown]
  - Drug ineffective [Unknown]
  - Drug ineffective for unapproved indication [Recovering/Resolving]
  - Product use in unapproved indication [Recovering/Resolving]
